FAERS Safety Report 17284609 (Version 4)
Quarter: 2020Q1

REPORT INFORMATION
  Report Type: Spontaneous
  Country: ES (occurrence: ES)
  Receive Date: 20200117
  Receipt Date: 20200131
  Transmission Date: 20200409
  Serious: Yes (Disabling)
  Sender: FDA-Public Use
  Company Number: ES-JNJFOC-20200116341

PATIENT
  Age: 54 Year
  Sex: Male

DRUGS (2)
  1. XEPLION [Suspect]
     Active Substance: PALIPERIDONE PALMITATE
     Dosage: SECOND DOSE 100 MG
     Route: 030
  2. XEPLION [Suspect]
     Active Substance: PALIPERIDONE PALMITATE
     Indication: SCHIZOPHRENIA
     Route: 030

REACTIONS (4)
  - Ear pain [Unknown]
  - Deafness [Recovered/Resolved]
  - Ejaculation disorder [Unknown]
  - Hyperhidrosis [Unknown]

NARRATIVE: CASE EVENT DATE: 202001
